FAERS Safety Report 9892058 (Version 2)
Quarter: 2014Q2

REPORT INFORMATION
  Report Type: Spontaneous
  Country: US (occurrence: US)
  Receive Date: 20140212
  Receipt Date: 20140424
  Transmission Date: 20141212
  Serious: Yes (Life-Threatening, Other)
  Sender: FDA-Public Use
  Company Number: US-GLAXOSMITHKLINE-A1059656A

PATIENT
  Age: 54 Year
  Sex: Female

DRUGS (7)
  1. PROMACTA [Suspect]
     Indication: RENAL CANCER
     Dosage: 75MG PER DAY
     Route: 048
     Dates: start: 20130227
  2. CALCIUM [Concomitant]
  3. CLARITIN [Concomitant]
  4. FOSAMAX [Concomitant]
  5. LOPRESSOR [Concomitant]
  6. POTASSIUM [Concomitant]
  7. VALTREX [Concomitant]

REACTIONS (4)
  - Osteoporosis [Unknown]
  - Spinal compression fracture [Unknown]
  - Spinal operation [Unknown]
  - Off label use [Unknown]
